FAERS Safety Report 19698534 (Version 3)
Quarter: 2021Q3

REPORT INFORMATION
  Report Type: Report from Study
  Country: US (occurrence: US)
  Receive Date: 20210813
  Receipt Date: 20210920
  Transmission Date: 20211014
  Serious: Yes (Other)
  Sender: FDA-Public Use
  Company Number: US-PFIZER INC-202101001934

PATIENT
  Age: 38 Year
  Sex: Female

DRUGS (1)
  1. SOMAVERT [Suspect]
     Active Substance: PEGVISOMANT
     Dosage: 10 MG
     Dates: start: 20210727

REACTIONS (3)
  - Blood sodium decreased [Unknown]
  - Adrenocortical insufficiency acute [Unknown]
  - Blood potassium decreased [Unknown]
